FAERS Safety Report 16900048 (Version 1)
Quarter: 2019Q4

REPORT INFORMATION
  Report Type: Spontaneous
  Country: US (occurrence: US)
  Receive Date: 20190815
  Receipt Date: 20190815
  Transmission Date: 20200122
  Serious: Yes (Hospitalization)
  Sender: FDA-Public Use
  Company Number: None

PATIENT
  Age: 69 Year
  Sex: Female
  Weight: 63.5 kg

DRUGS (7)
  1. ASPIRIN 81 [Concomitant]
     Active Substance: ASPIRIN
  2. CLOPIDOGREL 75MG / DAY [Concomitant]
  3. ATORVASTATIN 40MG 1/DAY [Concomitant]
  4. GABAPENTIN 300MG [Suspect]
     Active Substance: GABAPENTIN
     Indication: NEUROPATHY PERIPHERAL
     Route: 048
     Dates: start: 20190718, end: 20190718
  5. INSULIN 28UNITS/DAY [Concomitant]
  6. MULTI-VITAMIN [Concomitant]
     Active Substance: .ALPHA.-TOCOPHEROL ACETATE, DL-\ASCORBIC ACID\CYANOCOBALAMIN\FLUORIDE ION\FOLIC ACID\NIACIN\PYRIDOXINE\RIBOFLAVIN\THIAMINE\VITAMIN A\VITAMIN D
  7. METFORMIN 1000MG 2XDAY [Concomitant]

REACTIONS (5)
  - Pain in extremity [None]
  - Blood glucose abnormal [None]
  - Vision blurred [None]
  - Laboratory test abnormal [None]
  - Loss of consciousness [None]

NARRATIVE: CASE EVENT DATE: 20190718
